FAERS Safety Report 9090893 (Version 1)
Quarter: 2013Q1

REPORT INFORMATION
  Report Type: Spontaneous
  Country: BR (occurrence: BR)
  Receive Date: 20130131
  Receipt Date: 20130131
  Transmission Date: 20140127
  Serious: Yes (Death, Hospitalization, Other)
  Sender: FDA-Public Use
  Company Number: PHHY2013BR008414

PATIENT
  Age: 82 Year
  Sex: Female

DRUGS (5)
  1. FORASEQ [Suspect]
     Indication: LUNG DISORDER
     Dosage: 1 DF, Q12H
     Dates: start: 20110519
  2. ZITROMAX [Concomitant]
     Dosage: 1 DF, QD
     Route: 048
  3. NORVASC [Concomitant]
     Dosage: 1 DF, QD
     Route: 048
  4. COZAAR [Concomitant]
     Dosage: 1 DF, QD
     Route: 048
  5. LASIX [Concomitant]
     Dosage: 1 DF, QD
     Route: 048

REACTIONS (5)
  - Cardiac arrest [Fatal]
  - Cerebrovascular accident [Not Recovered/Not Resolved]
  - Convulsion [Not Recovered/Not Resolved]
  - Coma [Unknown]
  - Renal disorder [Unknown]
